FAERS Safety Report 10600704 (Version 1)
Quarter: 2014Q4

REPORT INFORMATION
  Report Type: Spontaneous
  Country: US (occurrence: None)
  Receive Date: 20141119
  Receipt Date: 20141119
  Transmission Date: 20150529
  Serious: No
  Sender: FDA-Public Use
  Company Number: 1000071118

PATIENT
  Age: 64 Year
  Sex: Male

DRUGS (4)
  1. METFORMIN [Concomitant]
     Active Substance: METFORMIN HYDROCHLORIDE
  2. LEFLUNOMIDE. [Concomitant]
     Active Substance: LEFLUNOMIDE
  3. CELONTIN (MESUXIMIDE) [Concomitant]
  4. TUDORZA PRESSAIR [Suspect]
     Active Substance: ACLIDINIUM BROMIDE
     Indication: ASTHMA
     Dosage: 800 MCG, (400 MCG, 2 IN 1D)RESPIRATORY
     Route: 055
     Dates: start: 2014

REACTIONS (2)
  - Pollakiuria [None]
  - Off label use [None]

NARRATIVE: CASE EVENT DATE: 2014
